FAERS Safety Report 15198356 (Version 2)
Quarter: 2018Q3

REPORT INFORMATION
  Report Type: Report from Study
  Country: DE (occurrence: DE)
  Receive Date: 20180725
  Receipt Date: 20180801
  Transmission Date: 20181010
  Serious: Yes (Other)
  Sender: FDA-Public Use
  Company Number: DE-PFIZER INC-2018294639

PATIENT

DRUGS (2)
  1. MYCOPHENOLIC ACID. [Suspect]
     Active Substance: MYCOPHENOLIC ACID
     Indication: PROGRESSIVE FACIAL HEMIATROPHY
     Dosage: 40 MG/KG, 1X/DAY
  2. METHOTREXATE SODIUM. [Suspect]
     Active Substance: METHOTREXATE SODIUM
     Indication: PROGRESSIVE FACIAL HEMIATROPHY
     Dosage: 10 MG/M2, WEEKLY

REACTIONS (2)
  - Progressive facial hemiatrophy [Unknown]
  - Condition aggravated [Unknown]
